FAERS Safety Report 17803395 (Version 1)
Quarter: 2020Q2

REPORT INFORMATION
  Report Type: Spontaneous
  Country: NO (occurrence: NO)
  Receive Date: 20200519
  Receipt Date: 20200519
  Transmission Date: 20200714
  Serious: Yes (Other)
  Sender: FDA-Public Use
  Company Number: NO-ROCHE-2601443

PATIENT
  Sex: Male

DRUGS (4)
  1. VALIUM [Suspect]
     Active Substance: DIAZEPAM
     Indication: PRODUCT USED FOR UNKNOWN INDICATION
     Route: 065
  2. XANOR [Suspect]
     Active Substance: ALPRAZOLAM
     Indication: BACK PAIN
     Route: 065
     Dates: start: 2019, end: 2019
  3. XANOR [Suspect]
     Active Substance: ALPRAZOLAM
     Dosage: (6X3 MG)
     Route: 065
  4. KETORAX [Suspect]
     Active Substance: KETOBEMIDONE HYDROCHLORIDE
     Indication: PRODUCT USED FOR UNKNOWN INDICATION
     Route: 065

REACTIONS (7)
  - Muscle spasms [Unknown]
  - Loss of consciousness [Unknown]
  - Product prescribing error [Unknown]
  - Coma [Unknown]
  - Tremor [Unknown]
  - Amnesia [Unknown]
  - Pain [Unknown]

NARRATIVE: CASE EVENT DATE: 2019
